FAERS Safety Report 10216874 (Version 1)
Quarter: 2014Q2

REPORT INFORMATION
  Report Type: Spontaneous
  Country: FR (occurrence: FR)
  Receive Date: 20140604
  Receipt Date: 20140604
  Transmission Date: 20141212
  Serious: Yes (Hospitalization)
  Sender: FDA-Public Use
  Company Number: FR-ELI_LILLY_AND_COMPANY-FR201405007901

PATIENT
  Sex: Female

DRUGS (2)
  1. UMATROPE [Suspect]
     Indication: GROWTH RETARDATION
     Dosage: 0.045 MG/KG, QD
     Route: 058
     Dates: start: 201003, end: 201305
  2. ENANTONE                           /00726901/ [Concomitant]
     Dosage: UNK
     Dates: start: 200803, end: 201006

REACTIONS (2)
  - Exostosis [Not Recovered/Not Resolved]
  - Dysplasia [Not Recovered/Not Resolved]
